FAERS Safety Report 5393948-5 (Version None)
Quarter: 2007Q3

REPORT INFORMATION
  Report Type: 
  Country: None (occurrence: None)
  Receive Date: 20070723
  Receipt Date: 20070116
  Transmission Date: 20080115
  Serious: No
  Sender: FDA-Public Use
  Company Number: A0628971A

PATIENT
  Age: 63 Year
  Sex: Female
  Weight: 123.6 kg

DRUGS (9)
  1. AVANDIA [Suspect]
     Dosage: 4MG PER DAY
     Route: 048
     Dates: start: 20061113
  2. BYETTA [Concomitant]
  3. METFORMIN HCL [Concomitant]
  4. AMARYL [Concomitant]
  5. VYTORIN [Concomitant]
  6. AVAPRO [Concomitant]
  7. LISINOPRIL [Concomitant]
  8. VERAPAMIL ER [Concomitant]
  9. SYNTHROID [Concomitant]

REACTIONS (4)
  - FATIGUE [None]
  - OEDEMA [None]
  - VISION BLURRED [None]
  - WEIGHT INCREASED [None]
